FAERS Safety Report 24793856 (Version 1)
Quarter: 2024Q4

REPORT INFORMATION
  Report Type: Spontaneous
  Country: AR (occurrence: AR)
  Receive Date: 20241231
  Receipt Date: 20241231
  Transmission Date: 20250114
  Serious: Yes (Other)
  Sender: ALKEM
  Company Number: None

PATIENT
  Age: 12 Year
  Sex: Male

DRUGS (1)
  1. TACROLIMUS [Suspect]
     Active Substance: TACROLIMUS
     Indication: Immunosuppressant drug therapy
     Dosage: 0.1 MILLIGRAM/KILOGRAM, QD (EVERY 1 DAY)
     Route: 065

REACTIONS (7)
  - Systemic candida [Unknown]
  - Gastrointestinal fungal infection [Recovering/Resolving]
  - Hepatic infection fungal [Recovering/Resolving]
  - Epstein-Barr virus infection reactivation [Unknown]
  - Cytomegalovirus infection reactivation [Unknown]
  - Microsporidia infection [Recovering/Resolving]
  - Adenovirus reactivation [Unknown]

NARRATIVE: CASE EVENT DATE: 20220101
